FAERS Safety Report 7246860-0 (Version None)
Quarter: 2011Q1

REPORT INFORMATION
  Report Type: 
  Country: None (occurrence: None)
  Receive Date: 20110127
  Receipt Date: 20110117
  Transmission Date: 20110831
  Serious: Yes (Hospitalization)
  Sender: FDA-Public Use
  Company Number: PHHY2011AU00959

PATIENT
  Sex: Male

DRUGS (8)
  1. ROXITHROMYCIN [Concomitant]
     Dosage: 150 MG, BID
  2. PANTOPRAZOLE [Concomitant]
     Dosage: 40 MG, BID
     Route: 048
  3. CLOZARIL [Suspect]
     Dosage: 450 MG, QD
     Dates: start: 20100906
  4. FLUTICASONE PROPIONATE [Concomitant]
     Dosage: 250 MG, UNK
  5. CLOZARIL [Suspect]
     Dosage: 450 MG, UNK
     Route: 048
     Dates: start: 20100609
  6. AMOXICILLIN [Concomitant]
     Dosage: 375 MG, BID
  7. CLAVULANATE POTASSIUM [Concomitant]
     Dosage: 125 MG, BID
     Route: 048
  8. VALPROATE [Concomitant]
     Dosage: 2000 MG, BID
     Route: 048

REACTIONS (1)
  - OBSTRUCTION [None]
